FAERS Safety Report 6738596-7 (Version None)
Quarter: 2010Q2

REPORT INFORMATION
  Report Type: 
  Country: None (occurrence: None)
  Receive Date: 20100524
  Receipt Date: 20100512
  Transmission Date: 20101027
  Serious: Yes (Other)
  Sender: FDA-Public Use
  Company Number: BR-PFIZER INC-2010059691

PATIENT
  Sex: Female

DRUGS (4)
  1. REVATIO [Suspect]
     Indication: PULMONARY HYPERTENSION
     Dosage: 25 MG (HALF TABLET OF 50 MG), 1X/DAY
     Route: 048
  2. SILDENAFIL CITRATE [Suspect]
     Indication: PULMONARY HYPERTENSION
     Dosage: 25 MG, 3X/DAY
  3. VERAPAMIL [Concomitant]
     Indication: HEART RATE IRREGULAR
     Dosage: UNK
  4. OXYGEN [Concomitant]
     Dosage: UNK

REACTIONS (7)
  - DRUG EFFECT DECREASED [None]
  - HEPATOMEGALY [None]
  - MALAISE [None]
  - OEDEMA PERIPHERAL [None]
  - PULMONARY ARTERIAL PRESSURE INCREASED [None]
  - SCLERODERMA [None]
  - TACHYCARDIA [None]
